FAERS Safety Report 11338055 (Version 1)
Quarter: 2015Q3

REPORT INFORMATION
  Report Type: Spontaneous
  Country: US (occurrence: US)
  Receive Date: 20150803
  Receipt Date: 20150803
  Transmission Date: 20151125
  Serious: Yes (Hospitalization, Disabling)
  Sender: FDA-Public Use
  Company Number: US-ELI_LILLY_AND_COMPANY-US200911005504

PATIENT
  Age: 26 Year
  Sex: Male
  Weight: 111.11 kg

DRUGS (13)
  1. ZYPREXA [Suspect]
     Active Substance: OLANZAPINE
     Indication: PARANOIA
     Dosage: 2.5 MG, DAILY (1/D)
     Dates: start: 20000322, end: 2004
  2. ZYPREXA [Suspect]
     Active Substance: OLANZAPINE
     Dosage: 7.5 MG, UNK
  3. ATIVAN [Concomitant]
     Active Substance: LORAZEPAM
     Dosage: 2 MG, EACH EVENING
  4. VALIUM [Concomitant]
     Active Substance: DIAZEPAM
     Indication: DELUSION
     Route: 042
     Dates: start: 20000322
  5. COGENTIN [Concomitant]
     Active Substance: BENZTROPINE MESYLATE
     Dosage: UNK, UNK
     Dates: start: 2004, end: 2004
  6. ZYPREXA [Suspect]
     Active Substance: OLANZAPINE
     Dosage: 17.5 MG, UNK
     Dates: start: 20030708
  7. ZIPRASIDONE. [Concomitant]
     Active Substance: ZIPRASIDONE
     Dosage: UNK, UNK
     Dates: start: 2001, end: 2001
  8. ZYPREXA [Suspect]
     Active Substance: OLANZAPINE
     Dosage: 10 MG, UNK
     Dates: start: 2000
  9. ZYPREXA [Suspect]
     Active Substance: OLANZAPINE
     Dosage: 15 MG, UNK
  10. ZYPREXA [Suspect]
     Active Substance: OLANZAPINE
     Dosage: 5 MG, UNK
     Dates: start: 2001
  11. ARIPIPRAZOLE. [Concomitant]
     Active Substance: ARIPIPRAZOLE
     Dosage: 5 MG, UNK
     Dates: start: 2003
  12. LITHIUM. [Concomitant]
     Active Substance: LITHIUM
     Indication: CATATONIA
     Dates: start: 2000, end: 2001
  13. SYNTHROID [Concomitant]
     Active Substance: LEVOTHYROXINE SODIUM
     Indication: BASEDOW^S DISEASE
     Dosage: 0.05 MG, DAILY (1/D)
     Dates: start: 200107

REACTIONS (10)
  - Weight increased [Recovering/Resolving]
  - Eye movement disorder [Unknown]
  - Diabetes mellitus [Not Recovered/Not Resolved]
  - Increased appetite [Recovering/Resolving]
  - Arthropathy [Unknown]
  - Obesity [Not Recovered/Not Resolved]
  - Peripheral vascular disorder [Not Recovered/Not Resolved]
  - Hypertension [Unknown]
  - Tachycardia [Unknown]
  - Prescribed overdose [Unknown]

NARRATIVE: CASE EVENT DATE: 2000
